FAERS Safety Report 9995640 (Version 1)
Quarter: 2014Q1

REPORT INFORMATION
  Report Type: Spontaneous
  Country: US (occurrence: US)
  Receive Date: 20140311
  Receipt Date: 20140311
  Transmission Date: 20141002
  Serious: No
  Sender: FDA-Public Use
  Company Number: US-GALDERMA-US13001248

PATIENT
  Age: 28 Year
  Sex: Male

DRUGS (4)
  1. TRI-LUMA CREAM (FLUOCINOLONE ACETONIDE 0.01%, HYDROQUINONE 4%, TRETINO [Suspect]
     Indication: SKIN HYPERPIGMENTATION
     Route: 061
     Dates: start: 20130405, end: 20130418
  2. TRI-LUMA CREAM (FLUOCINOLONE ACETONIDE 0.01%, HYDROQUINONE 4%, TRETINO [Suspect]
     Indication: POST INFLAMMATORY PIGMENTATION CHANGE
     Dates: start: 20130418
  3. NOXZEMA ORIGINAL SKIN CLEANSER [Concomitant]
     Indication: THERAPEUTIC SKIN CARE TOPICAL
     Route: 061
  4. SUNSCREEN 50 [Concomitant]
     Indication: PROPHYLAXIS AGAINST SOLAR RADIATION
     Route: 061

REACTIONS (3)
  - Erythema [Recovered/Resolved]
  - Skin hypopigmentation [Recovered/Resolved]
  - Off label use [Recovered/Resolved]
